FAERS Safety Report 10068040 (Version 1)
Quarter: 2014Q2

REPORT INFORMATION
  Report Type: Report from Study
  Country: CA (occurrence: CA)
  Receive Date: 20140409
  Receipt Date: 20140409
  Transmission Date: 20141212
  Serious: Yes (Other)
  Sender: FDA-Public Use
  Company Number: CA-JNJFOC-20140402366

PATIENT
  Age: 41 Year
  Sex: Female
  Weight: 73.6 kg

DRUGS (6)
  1. REMICADE [Suspect]
     Indication: CROHN^S DISEASE
     Route: 042
     Dates: start: 200802
  2. FOLIC ACID [Concomitant]
     Route: 065
  3. TYLENOL W/ CODEINE [Concomitant]
     Route: 065
  4. VENTOLIN [Concomitant]
     Dosage: 2 PUFFS
     Route: 065
  5. ZOLOFT [Concomitant]
     Route: 065
  6. PREDNISONE [Concomitant]
     Route: 065

REACTIONS (1)
  - Fistula [Recovering/Resolving]
